FAERS Safety Report 11143361 (Version 3)
Quarter: 2015Q2

REPORT INFORMATION
  Report Type: Spontaneous
  Country: IT (occurrence: IT)
  Receive Date: 20150528
  Receipt Date: 20150616
  Transmission Date: 20150821
  Serious: Yes (Other)
  Sender: FDA-Public Use
  Company Number: IT-ROCHE-1584153

PATIENT
  Age: 45 Year
  Sex: Female

DRUGS (6)
  1. ROACTEMRA [Suspect]
     Active Substance: TOCILIZUMAB
     Route: 042
     Dates: start: 20150506
  2. ROACTEMRA [Suspect]
     Active Substance: TOCILIZUMAB
     Indication: RHEUMATOID ARTHRITIS
     Dosage: 20 MG/ML, 20 ML VIAL (GLASS)  1 VIAL?DATE OF MOST RECENT DOSE OF TOCILIZUMAB PRIOR TO ADVERSE EVENT
     Route: 042
     Dates: start: 20100721, end: 20150408
  3. LODOTRA [Concomitant]
     Active Substance: PREDNISONE
     Dosage: 5 MG MODIFIED-RELEASE TABLETS^ 30 TABLETS IN HDPE
     Route: 048
  4. DIBASE [Concomitant]
     Active Substance: CHOLECALCIFEROL
     Dosage: ^25,000 IU/2.5 ML ORAL SOLUTION^ 1 X 2.5 ML VIAL
     Route: 048
  5. LAROXYL [Concomitant]
     Active Substance: AMITRIPTYLINE
     Dosage: ^40 MG/ML ORAL DROPS, SOLUTION^ 20 ML BOTTLE
     Route: 048
  6. OMEPRAZOLE. [Concomitant]
     Active Substance: OMEPRAZOLE
     Route: 048

REACTIONS (1)
  - Pneumonitis [Recovered/Resolved]

NARRATIVE: CASE EVENT DATE: 20150323
